APPROVED DRUG PRODUCT: VECURONIUM BROMIDE
Active Ingredient: VECURONIUM BROMIDE
Strength: 10MG/VIAL
Dosage Form/Route: INJECTABLE;INJECTION
Application: A205390 | Product #001 | TE Code: AP
Applicant: GLAND PHARMA LTD
Approved: May 26, 2016 | RLD: No | RS: No | Type: RX